FAERS Safety Report 4286721-2 (Version None)
Quarter: 2004Q1

REPORT INFORMATION
  Report Type: 
  Country: None (occurrence: None)
  Receive Date: 20040204
  Receipt Date: 20040122
  Transmission Date: 20041129
  Serious: Yes (Hospitalization)
  Sender: FDA-Public Use
  Company Number: 204321

PATIENT
  Age: 72 Year
  Sex: Male

DRUGS (2)
  1. RITUXAN [Suspect]
     Indication: NON-HODGKIN'S LYMPHOMA
     Dates: start: 20040108, end: 20040108
  2. CHEMOTHERAPY NOS (ANTINEOPLASTIC AGENT NOS) [Concomitant]

REACTIONS (7)
  - BLISTER [None]
  - ERYTHEMA [None]
  - IMPAIRED HEALING [None]
  - INJECTION SITE REACTION [None]
  - MEDICATION ERROR [None]
  - OEDEMA PERIPHERAL [None]
  - WOUND DRAINAGE [None]
